FAERS Safety Report 14270433 (Version 2)
Quarter: 2018Q1

REPORT INFORMATION
  Report Type: Spontaneous
  Country: US (occurrence: US)
  Receive Date: 20171211
  Receipt Date: 20180307
  Transmission Date: 20180508
  Serious: Yes (Other)
  Sender: FDA-Public Use
  Company Number: US-BAYER-2017-232557

PATIENT
  Age: 38 Year
  Sex: Female

DRUGS (3)
  1. MIRENA [Suspect]
     Active Substance: LEVONORGESTREL
     Indication: UTERINE LEIOMYOMA
     Dosage: 20 MCG/24HR, CONT
     Route: 015
     Dates: start: 2008, end: 201707
  2. MIRENA [Suspect]
     Active Substance: LEVONORGESTREL
     Indication: UTERINE LEIOMYOMA
     Dosage: 20 MCG/24HR, CONT
     Route: 015
     Dates: start: 20170829
  3. MIRENA [Suspect]
     Active Substance: LEVONORGESTREL
     Indication: UTERINE LEIOMYOMA

REACTIONS (18)
  - Back pain [None]
  - Pruritus [None]
  - Metrorrhagia [None]
  - Eye irritation [None]
  - Post procedural discomfort [None]
  - Post procedural haemorrhage [Recovered/Resolved]
  - Abdominal distension [None]
  - Product use in unapproved indication [None]
  - Alopecia [None]
  - Adverse reaction [None]
  - Abdominal pain [None]
  - Musculoskeletal pain [None]
  - Pelvic pain [None]
  - Vaginal haemorrhage [None]
  - Procedural pain [None]
  - Yellow skin [None]
  - Feeling abnormal [None]
  - Off label use [None]

NARRATIVE: CASE EVENT DATE: 2017
